FAERS Safety Report 4970339-X (Version None)
Quarter: 2006Q2

REPORT INFORMATION
  Report Type: 
  Country: None (occurrence: None)
  Receive Date: 20060406
  Receipt Date: 20060321
  Transmission Date: 20061013
  Serious: Yes (Other)
  Sender: FDA-Public Use
  Company Number: USA0509108728

PATIENT
  Age: 12 Year
  Sex: Male
  Weight: 69.1 kg

DRUGS (1)
  1. STRATTERA [Suspect]
     Indication: ATTENTION DEFICIT/HYPERACTIVITY DISORDER
     Dosage: 43 MG, DAILY (1/D)
     Dates: start: 20040818, end: 20050418

REACTIONS (1)
  - HEPATIC STEATOSIS [None]
